FAERS Safety Report 8971550 (Version 2)
Quarter: 2013Q1

REPORT INFORMATION
  Report Type: Spontaneous
  Country: BR (occurrence: BR)
  Receive Date: 20121218
  Receipt Date: 20130226
  Transmission Date: 20140127
  Serious: Yes (Other)
  Sender: FDA-Public Use
  Company Number: PHHY2012BR115592

PATIENT
  Sex: Female

DRUGS (3)
  1. DIOVAN HCT [Suspect]
     Indication: HYPERTENSION
     Dosage: 1 DF (80 MG VAL/ 12.5 MG HCT), PER DAY
     Route: 048
     Dates: start: 20081211
  2. LORAX                                   /BRA/ [Concomitant]
     Indication: DEPRESSION
     Dosage: 1 DF, AT NIGHT
     Route: 048
  3. SIMVASTATIN [Concomitant]
     Dosage: 1 DF, AT NIGHT
     Route: 048
     Dates: start: 201212

REACTIONS (10)
  - Thyroid neoplasm [Recovering/Resolving]
  - Lens dislocation [Not Recovered/Not Resolved]
  - Visual acuity reduced [Recovering/Resolving]
  - Eye disorder [Not Recovered/Not Resolved]
  - Eye inflammation [Recovering/Resolving]
  - Dengue fever [Recovering/Resolving]
  - Blood cholesterol increased [Recovering/Resolving]
  - Depressed mood [Recovering/Resolving]
  - Crying [Recovering/Resolving]
  - Blood pressure increased [Not Recovered/Not Resolved]
